FAERS Safety Report 16969773 (Version 1)
Quarter: 2019Q4

REPORT INFORMATION
  Report Type: Spontaneous
  Country: CA (occurrence: CA)
  Receive Date: 20191029
  Receipt Date: 20191029
  Transmission Date: 20200122
  Serious: Yes (Other)
  Sender: FDA-Public Use
  Company Number: CA-PFIZER INC-2019464418

PATIENT
  Age: 27 Year
  Sex: Male

DRUGS (1)
  1. CHAMPIX [Suspect]
     Active Substance: VARENICLINE TARTRATE
     Indication: SMOKING CESSATION THERAPY
     Dosage: 1 MG, 2X/DAY
     Route: 048

REACTIONS (4)
  - Self esteem decreased [Recovered/Resolved]
  - Intentional self-injury [Recovered/Resolved]
  - Anger [Recovered/Resolved]
  - Mood swings [Recovered/Resolved]
